FAERS Safety Report 4751223-3 (Version None)
Quarter: 2005Q3

REPORT INFORMATION
  Report Type: 
  Country: None (occurrence: None)
  Receive Date: 20050824
  Receipt Date: 20050325
  Transmission Date: 20060218
  Serious: Yes (Death, Life-Threatening, Hospitalization, Other)
  Sender: FDA-Public Use
  Company Number: JP-BRISTOL-MYERS SQUIBB COMPANY-12915880

PATIENT
  Age: 70 Year
  Sex: Female

DRUGS (8)
  1. GATIFLO TABS 100 MG [Suspect]
     Indication: PHARYNGITIS
     Dosage: DOSAGE DECREASED TO 200 MG DAILY ON 03-FEB-2005.
     Route: 048
     Dates: start: 20050131, end: 20050207
  2. GATIFLO TABS 100 MG [Suspect]
     Indication: BRONCHITIS
     Dosage: DOSAGE DECREASED TO 200 MG DAILY ON 03-FEB-2005.
     Route: 048
     Dates: start: 20050131, end: 20050207
  3. BIOFERMIN [Concomitant]
     Route: 048
     Dates: start: 20050131, end: 20050206
  4. TAKAPLEX [Concomitant]
     Route: 048
     Dates: start: 20050131, end: 20050206
  5. HOKUNALIN [Concomitant]
     Dosage: TAPE
     Route: 062
     Dates: start: 20050131, end: 20050206
  6. LEFTOSE [Concomitant]
     Route: 048
     Dates: start: 20050207, end: 20050209
  7. HERBAL PREPARATION [Concomitant]
     Route: 048
  8. PL GRANULES [Concomitant]
     Route: 048

REACTIONS (4)
  - COMA HEPATIC [None]
  - HEPATIC FAILURE [None]
  - HEPATITIS FULMINANT [None]
  - LIVER TRANSPLANT [None]
